FAERS Safety Report 4527901-8 (Version None)
Quarter: 2004Q4

REPORT INFORMATION
  Report Type: 
  Country: None (occurrence: None)
  Receive Date: 20041123
  Receipt Date: 20040803
  Transmission Date: 20050328
  Serious: Yes (Hospitalization)
  Sender: FDA-Public Use
  Company Number: US-JNJFOC-20040801232

PATIENT
  Age: 60 Year
  Sex: Female

DRUGS (3)
  1. RISPERDAL [Suspect]
     Indication: SCHIZOPHRENIA
     Dosage: 3.75 MG, 1 IN 2 WEEK, INTRA-MUSCULAR
     Route: 030
     Dates: start: 20040601
  2. RISPERDAL [Suspect]
     Dosage: 50 MG, 1 IN 2 WEEK, INTRA-MUSCULAR
     Route: 030
  3. RISPERDAL (TABLETS) RISPERIDONE [Concomitant]

REACTIONS (2)
  - DRUG INEFFECTIVE [None]
  - HALLUCINATION [None]
